FAERS Safety Report 8419188-0 (Version None)
Quarter: 2012Q2

REPORT INFORMATION
  Report Type: 
  Country: None (occurrence: None)
  Receive Date: 20120530
  Receipt Date: 20120515
  Transmission Date: 20120825
  Serious: Yes (Hospitalization)
  Sender: FDA-Public Use
  Company Number: AXC-2012-000253

PATIENT
  Age: 42 Year
  Sex: Male

DRUGS (4)
  1. DALTEPARIN SODIUM [Concomitant]
  2. FRESUBIN (CARBOHYDRATES NOS, FATTY ACIDS NOS, MINERALS NOS, PROTEINS N [Concomitant]
  3. UROSDEOXYCHOLIC ACID (URSODEOXYCHOLIC ACID) TABLET [Suspect]
     Indication: COLITIS ULCERATIVE
     Dosage: ORAL
     Route: 048
     Dates: start: 20090601
  4. INFLIXIMAB (INFLIXIMAB) UNKNOWN [Suspect]
     Indication: COLITIS ULCERATIVE
     Dates: start: 20091223, end: 20100301

REACTIONS (2)
  - NEPHROLITHIASIS [None]
  - CALCULUS URETERIC [None]
